FAERS Safety Report 7726579-X (Version None)
Quarter: 2011Q3

REPORT INFORMATION
  Report Type: 
  Country: None (occurrence: None)
  Receive Date: 20110902
  Receipt Date: 20110826
  Transmission Date: 20111222
  Serious: Yes (Hospitalization)
  Sender: FDA-Public Use
  Company Number: PHEH2011US02590

PATIENT
  Sex: Female
  Weight: 80.272 kg

DRUGS (6)
  1. HYDROXYUREA [Concomitant]
     Dosage: UNK UKN, UNK
     Route: 065
  2. PHENOBARBITAL TAB [Concomitant]
     Dosage: UNK UKN, UNK
     Route: 065
  3. CITRACAL [Concomitant]
     Dosage: UNK UKN, UNK
     Route: 065
  4. EXJADE [Suspect]
     Indication: SICKLE CELL ANAEMIA
     Dosage: 1500 MG, DAILY
     Route: 048
     Dates: start: 20081002
  5. FOLIC ACID [Concomitant]
     Dosage: UNK UKN, UNK
     Route: 065
  6. DILANTIN [Concomitant]
     Dosage: UNK UKN, UNK
     Route: 065

REACTIONS (1)
  - CYSTITIS [None]
